FAERS Safety Report 20168740 (Version 1)
Quarter: 2021Q4

REPORT INFORMATION
  Report Type: Spontaneous
  Country: US (occurrence: US)
  Receive Date: 20211210
  Receipt Date: 20211210
  Transmission Date: 20220303
  Serious: No
  Sender: FDA-Public Use
  Company Number: US-SA-SAC20211207000094

PATIENT
  Age: 58 Year
  Sex: Female

DRUGS (3)
  1. DUPIXENT [Suspect]
     Active Substance: DUPILUMAB
     Indication: Dermatitis atopic
     Dosage: 300MG/2ML
     Route: 058
     Dates: start: 20180110
  2. TYMLOS [Concomitant]
     Active Substance: ABALOPARATIDE
  3. ASCORBIC ACID [Concomitant]
     Active Substance: ASCORBIC ACID

REACTIONS (4)
  - Pruritus [Not Recovered/Not Resolved]
  - Discomfort [Not Recovered/Not Resolved]
  - Erythema [Not Recovered/Not Resolved]
  - Dermatitis atopic [Not Recovered/Not Resolved]
